FAERS Safety Report 7573957-8 (Version None)
Quarter: 2011Q2

REPORT INFORMATION
  Report Type: 
  Country: None (occurrence: None)
  Receive Date: 20110627
  Receipt Date: 20110617
  Transmission Date: 20111010
  Serious: Yes (Hospitalization, Other)
  Sender: FDA-Public Use
  Company Number: US-ALEXION-A201100624

PATIENT
  Sex: Male

DRUGS (2)
  1. MIRTAZAPINE [Concomitant]
  2. SOLIRIS [Suspect]
     Indication: PAROXYSMAL NOCTURNAL HAEMOGLOBINURIA
     Dosage: 900 MG Q2W
     Route: 042

REACTIONS (10)
  - PACKED RED BLOOD CELL TRANSFUSION [None]
  - OEDEMA PERIPHERAL [None]
  - CHRONIC MYELOMONOCYTIC LEUKAEMIA [None]
  - CLOSTRIDIAL INFECTION [None]
  - FATIGUE [None]
  - PNEUMONIA [None]
  - NAUSEA [None]
  - ASTHENIA [None]
  - BLOOD LACTATE DEHYDROGENASE INCREASED [None]
  - HAEMOLYSIS [None]
